FAERS Safety Report 13270517 (Version 2)
Quarter: 2017Q1

REPORT INFORMATION
  Report Type: Report from Study
  Country: US (occurrence: US)
  Receive Date: 20170224
  Receipt Date: 20170313
  Transmission Date: 20170428
  Serious: Yes (Death, Hospitalization)
  Sender: FDA-Public Use
  Company Number: US-ACTELION-A-US2017-150059

PATIENT
  Age: 45 Year
  Sex: Female

DRUGS (5)
  1. TYVASO [Concomitant]
     Active Substance: TREPROSTINIL
  2. TRACLEER [Suspect]
     Active Substance: BOSENTAN
     Indication: PULMONARY ARTERIAL HYPERTENSION
     Dosage: 125 MG, BID
     Route: 048
     Dates: start: 20061028, end: 20170228
  3. SILDENAFIL. [Concomitant]
     Active Substance: SILDENAFIL
  4. SAVAYSA [Concomitant]
     Active Substance: EDOXABAN TOSYLATE
  5. TRAZODONE [Concomitant]
     Active Substance: TRAZODONE HYDROCHLORIDE

REACTIONS (9)
  - Palpitations [Unknown]
  - Cough [Recovering/Resolving]
  - Presyncope [Recovering/Resolving]
  - Influenza [Recovering/Resolving]
  - Renal failure [Unknown]
  - General physical health deterioration [Unknown]
  - Oxygen consumption increased [Unknown]
  - Nasopharyngitis [Recovering/Resolving]
  - Death [Fatal]

NARRATIVE: CASE EVENT DATE: 20170228
